FAERS Safety Report 4693542-5 (Version None)
Quarter: 2005Q2

REPORT INFORMATION
  Report Type: 
  Country: None (occurrence: None)
  Receive Date: 20050615
  Receipt Date: 20050307
  Transmission Date: 20051028
  Serious: Yes (Death, Hospitalization)
  Sender: FDA-Public Use
  Company Number: 2005BI005404

PATIENT
  Age: 54 Year
  Sex: Male

DRUGS (9)
  1. NATALIZUMAB [Suspect]
     Indication: MULTIPLE SCLEROSIS
     Dosage: IV
     Route: 042
     Dates: start: 20050216, end: 20050216
  2. NOVANTRONE [Concomitant]
  3. NEURONTIN [Concomitant]
  4. BALCLOFEN [Concomitant]
  5. 4 AP [Concomitant]
  6. ORAL STEROIDS [Concomitant]
  7. METHOTREXATE [Concomitant]
  8. BETASERON [Concomitant]
  9. SOLU-MEDROL [Concomitant]

REACTIONS (27)
  - ABASIA [None]
  - AGEUSIA [None]
  - BRAIN OEDEMA [None]
  - CEREBRAL HAEMORRHAGE [None]
  - COGNITIVE DISORDER [None]
  - CONVULSION [None]
  - CSF WHITE BLOOD CELL COUNT POSITIVE [None]
  - DYSAESTHESIA [None]
  - DYSARTHRIA [None]
  - ELECTROENCEPHALOGRAM ABNORMAL [None]
  - ENCEPHALITIS HERPES [None]
  - FALL [None]
  - FATIGUE [None]
  - HEMIPARESIS [None]
  - HYPOAESTHESIA [None]
  - INFLUENZA [None]
  - INTRACRANIAL PRESSURE INCREASED [None]
  - LOSS OF CONSCIOUSNESS [None]
  - MALAISE [None]
  - MENTAL DISORDER [None]
  - MUSCLE SPASMS [None]
  - MUSCULOSKELETAL STIFFNESS [None]
  - NASAL CONGESTION [None]
  - NASOPHARYNGITIS [None]
  - RED BLOOD CELLS CSF POSITIVE [None]
  - SKIN DISORDER [None]
  - SLEEP DISORDER [None]
